FAERS Safety Report 12361553 (Version 2)
Quarter: 2016Q3

REPORT INFORMATION
  Report Type: Spontaneous
  Country: US (occurrence: US)
  Receive Date: 20160512
  Receipt Date: 20160809
  Transmission Date: 20161109
  Serious: No
  Sender: FDA-Public Use
  Company Number: US-SA-2016SA047739

PATIENT
  Age: 79 Year
  Sex: Male
  Weight: 74.84 kg

DRUGS (9)
  1. NAPROXEN. [Concomitant]
     Active Substance: NAPROXEN
  2. ALIROCUMAB PREFILLED PEN [Concomitant]
     Active Substance: ALIROCUMAB
     Dates: start: 20160122
  3. LOSARTAN. [Concomitant]
     Active Substance: LOSARTAN
  4. LEVOTHYROXINE. [Concomitant]
     Active Substance: LEVOTHYROXINE
  5. RANITIDINE. [Concomitant]
     Active Substance: RANITIDINE
  6. METOPROLOL. [Concomitant]
     Active Substance: METOPROLOL
  7. AMLODIPINE [Concomitant]
     Active Substance: AMLODIPINE BESYLATE
  8. PRALUENT [Suspect]
     Active Substance: ALIROCUMAB
     Indication: HYPERLIPIDAEMIA
     Route: 065
     Dates: start: 20160122, end: 201602
  9. XYLITOL [Concomitant]
     Active Substance: XYLITOL

REACTIONS (2)
  - Discomfort [Recovered/Resolved]
  - Abdominal discomfort [Recovered/Resolved]

NARRATIVE: CASE EVENT DATE: 20160124
